FAERS Safety Report 7224976-2 (Version None)
Quarter: 2011Q1

REPORT INFORMATION
  Report Type: 
  Country: None (occurrence: None)
  Receive Date: 20110107
  Receipt Date: 20110107
  Transmission Date: 20110831
  Serious: Yes (Death)
  Sender: FDA-Public Use
  Company Number: None

PATIENT
  Age: 91 Year
  Sex: Female
  Weight: 74.8435 kg

DRUGS (4)
  1. DIPHENHYDRAMINE 50MG APP PHARMACEUTICALS [Suspect]
     Indication: PREMEDICATION
     Dosage: 50MG X1 IV BOLUS
     Route: 040
     Dates: start: 20101216, end: 20101216
  2. DIPHENHYDRAMINE 50MG APP PHARMACEUTICALS [Suspect]
     Indication: TRANSFUSION
     Dosage: 50MG X1 IV BOLUS
     Route: 040
     Dates: start: 20101216, end: 20101216
  3. NORMAL SALINE [Concomitant]
  4. ACETAMINOPHEN [Concomitant]

REACTIONS (4)
  - PHARYNGEAL OEDEMA [None]
  - UNRESPONSIVE TO STIMULI [None]
  - DYSPNOEA [None]
  - SWOLLEN TONGUE [None]
